FAERS Safety Report 8869098 (Version 2)
Quarter: 2012Q4

REPORT INFORMATION
  Report Type: 
  Country: CO (occurrence: CO)
  Receive Date: 20121029
  Receipt Date: 20121203
  Transmission Date: 20130627
  Serious: Yes (Hospitalization, Other)
  Sender: FDA-Public Use
  Company Number: CO-009507513-1210COL009279

PATIENT
  Age: 60 Year
  Sex: Male

DRUGS (5)
  1. PEG-INTRON [Suspect]
     Indication: HEPATITIS C
     Dosage: UNK
     Route: 058
     Dates: start: 20120427
  2. RIBAVIRIN [Suspect]
     Dosage: 5 mg, qd
     Route: 048
  3. ENALAPRIL MALEATE [Concomitant]
  4. DILATREND [Concomitant]
     Dosage: 5 mg, qd
  5. PRADAXA [Concomitant]
     Dosage: 220 mg, qd

REACTIONS (2)
  - Asthenia [Recovered/Resolved]
  - Pyrexia [Recovered/Resolved]
